FAERS Safety Report 9917519 (Version 1)
Quarter: 2014Q1

REPORT INFORMATION
  Report Type: Spontaneous
  Country: IT (occurrence: IT)
  Receive Date: 20140221
  Receipt Date: 20140221
  Transmission Date: 20141002
  Serious: Yes (Hospitalization)
  Sender: FDA-Public Use
  Company Number: IT-JNJFOC-20140212635

PATIENT
  Age: 26 Year
  Sex: Male
  Weight: 68 kg

DRUGS (5)
  1. REMICADE [Suspect]
     Indication: COLITIS ULCERATIVE
     Dosage: 3RD INFUSION
     Route: 042
     Dates: start: 20100702, end: 20100702
  2. REMICADE [Suspect]
     Indication: COLITIS ULCERATIVE
     Route: 042
     Dates: start: 20100520
  3. MESALAZINE [Concomitant]
     Indication: COLITIS ULCERATIVE
     Route: 048
     Dates: start: 200901
  4. DELTACORTENE [Concomitant]
     Indication: COLITIS ULCERATIVE
     Route: 048
     Dates: start: 20100215, end: 20110401
  5. FLEBOCORTID RICHTER [Concomitant]
     Indication: PREMEDICATION
     Route: 042
     Dates: start: 20100702, end: 20100702

REACTIONS (5)
  - Dyspnoea [Recovered/Resolved]
  - Face oedema [Recovered/Resolved]
  - Nausea [Recovered/Resolved]
  - Respiratory tract oedema [Recovered/Resolved]
  - Infusion related reaction [Recovered/Resolved]
